FAERS Safety Report 24993443 (Version 3)
Quarter: 2025Q2

REPORT INFORMATION
  Report Type: Spontaneous
  Country: US (occurrence: US)
  Receive Date: 20250221
  Receipt Date: 20250520
  Transmission Date: 20250716
  Serious: Yes (Other)
  Sender: BRISTOL-MYERS SQUIBB COMPANY
  Company Number: US-BRISTOL-MYERS SQUIBB COMPANY-2025-026037

PATIENT
  Age: 71 Year
  Sex: Female

DRUGS (3)
  1. POMALYST [Suspect]
     Active Substance: POMALIDOMIDE
     Indication: Plasma cell myeloma
     Route: 048
     Dates: end: 202408
  2. POMALYST [Suspect]
     Active Substance: POMALIDOMIDE
     Dosage: QD FOR 14 DAYS ON, 14 DAYS OF
     Route: 048
  3. POMALYST [Suspect]
     Active Substance: POMALIDOMIDE
     Dosage: 21 DAYS ON, 7 DAYS OFF
     Route: 048

REACTIONS (3)
  - White blood cell count decreased [Not Recovered/Not Resolved]
  - Tumour marker increased [Unknown]
  - Upper respiratory tract infection [Recovered/Resolved]
